FAERS Safety Report 21236861 (Version 2)
Quarter: 2022Q3

REPORT INFORMATION
  Report Type: Report from Study
  Country: US (occurrence: US)
  Receive Date: 20220822
  Receipt Date: 20220911
  Transmission Date: 20221026
  Serious: No
  Sender: FDA-Public Use
  Company Number: US-SA-SAC20220815000738

PATIENT
  Age: 37 Year
  Sex: Female
  Weight: 60.327 kg

DRUGS (2)
  1. DUPIXENT [Suspect]
     Active Substance: DUPILUMAB
     Indication: Dermatitis atopic
     Dosage: 600 MG, 1X
     Route: 058
     Dates: start: 20220801, end: 20220801
  2. DUPIXENT [Suspect]
     Active Substance: DUPILUMAB
     Dosage: 300 MG, QOW
     Route: 058
     Dates: start: 2022

REACTIONS (5)
  - Pruritus [Recovered/Resolved]
  - Dermatitis atopic [Recovered/Resolved]
  - Insomnia [Recovered/Resolved]
  - Eczema [Unknown]
  - Sensory disturbance [Not Recovered/Not Resolved]

NARRATIVE: CASE EVENT DATE: 20220101
